FAERS Safety Report 18980540 (Version 1)
Quarter: 2021Q1

REPORT INFORMATION
  Report Type: Other
  Country: ES (occurrence: ES)
  Receive Date: 20210308
  Receipt Date: 20210308
  Transmission Date: 20210420
  Serious: Yes (Death)
  Sender: FDA-Public Use
  Company Number: ES-ROCHE-2736060

PATIENT
  Age: 63 Year
  Sex: Male

DRUGS (9)
  1. CEFTRIAXONE. [Suspect]
     Active Substance: CEFTRIAXONE
     Indication: BACTERIAL INFECTION
     Route: 065
     Dates: start: 2020
  2. AZITHROMYCIN ANHYDROUS. [Concomitant]
     Active Substance: AZITHROMYCIN ANHYDROUS
     Indication: COVID-19
     Dosage: UNK
     Dates: start: 2020
  3. LOPINAVIR/RITONAVIR [Concomitant]
     Active Substance: LOPINAVIR\RITONAVIR
     Indication: COVID-19
     Dosage: UNK
     Dates: start: 2020
  4. TOCILIZUMAB. [Suspect]
     Active Substance: TOCILIZUMAB
     Indication: COVID-19
     Route: 065
  5. HYDROXYCHLOROQUINE [Concomitant]
     Active Substance: HYDROXYCHLOROQUINE
  6. PREDNISONE. [Concomitant]
     Active Substance: PREDNISONE
     Dosage: }/= 20 MG/DAY
  7. CEFTOLOZANE;TAZOBACTAM [Suspect]
     Active Substance: CEFTOLOZANE SULFATE\TAZOBACTAM SODIUM
     Indication: BACTERIAL INFECTION
     Route: 065
     Dates: start: 2020
  8. LINEZOLID. [Suspect]
     Active Substance: LINEZOLID
     Indication: BACTERIAL INFECTION
     Route: 065
     Dates: start: 2020
  9. MEROPENEM. [Suspect]
     Active Substance: MEROPENEM
     Indication: BACTERIAL INFECTION
     Route: 065
     Dates: start: 2020

REACTIONS (2)
  - Bronchopulmonary aspergillosis [Fatal]
  - Off label use [Unknown]

NARRATIVE: CASE EVENT DATE: 2020
